FAERS Safety Report 5391987-1 (Version None)
Quarter: 2007Q3

REPORT INFORMATION
  Report Type: 
  Country: None (occurrence: None)
  Receive Date: 20070720
  Receipt Date: 20070710
  Transmission Date: 20080115
  Serious: Yes (Other)
  Sender: FDA-Public Use
  Company Number: GB-JNJFOC-20070702765

PATIENT
  Sex: Male

DRUGS (2)
  1. DURAGESIC-100 [Suspect]
     Route: 062
  2. DURAGESIC-100 [Suspect]
     Indication: CANCER PAIN
     Route: 062

REACTIONS (5)
  - DYSPEPSIA [None]
  - FLUID RETENTION [None]
  - INTESTINAL OBSTRUCTION [None]
  - NAUSEA [None]
  - SPHINCTER OF ODDI DYSFUNCTION [None]
